FAERS Safety Report 8363978-X (Version None)
Quarter: 2012Q2

REPORT INFORMATION
  Report Type: 
  Country: None (occurrence: None)
  Receive Date: 20120516
  Receipt Date: 20120510
  Transmission Date: 20120825
  Serious: Yes (Hospitalization, Other)
  Sender: FDA-Public Use
  Company Number: US-PURDUE-USA-2012-0086220

PATIENT
  Sex: Male

DRUGS (1)
  1. OXYCONTIN [Suspect]
     Indication: PAIN
     Dosage: UNK UNK, SEE TEXT
     Route: 048
     Dates: start: 20070101, end: 20070101

REACTIONS (7)
  - DRUG INTOLERANCE [None]
  - RESPIRATORY DEPRESSION [None]
  - RENAL FAILURE [None]
  - DISORIENTATION [None]
  - ABNORMAL BEHAVIOUR [None]
  - SEDATION [None]
  - RENAL IMPAIRMENT [None]
